FAERS Safety Report 21378844 (Version 1)
Quarter: 2022Q3

REPORT INFORMATION
  Report Type: Spontaneous
  Country: US (occurrence: US)
  Receive Date: 20220927
  Receipt Date: 20220927
  Transmission Date: 20221027
  Serious: Yes (Other)
  Sender: FDA-Public Use
  Company Number: US-BRISTOL-MYERS SQUIBB COMPANY-2022-111724

PATIENT
  Age: 74 Year
  Sex: Female
  Weight: 54.43 kg

DRUGS (3)
  1. ZEPOSIA [Suspect]
     Active Substance: OZANIMOD HYDROCHLORIDE
     Indication: Colitis ulcerative
     Dosage: DOSE : UNAVAILABLE;     FREQ : ONCE A DAY
     Route: 048
     Dates: start: 20220301
  2. METOPROLOL [Concomitant]
     Active Substance: METOPROLOL
     Indication: Product used for unknown indication
     Route: 065
  3. PROLIA [Concomitant]
     Active Substance: DENOSUMAB
     Indication: Product used for unknown indication
     Route: 065

REACTIONS (6)
  - Tachycardia [Unknown]
  - Cerebrovascular accident [Unknown]
  - Mental disorder [Unknown]
  - Urinary tract infection [Unknown]
  - Infarction [Unknown]
  - Compression fracture [Unknown]

NARRATIVE: CASE EVENT DATE: 20220901
